FAERS Safety Report 26218927 (Version 1)
Quarter: 2025Q4

REPORT INFORMATION
  Report Type: Spontaneous
  Country: US (occurrence: US)
  Receive Date: 20251231
  Receipt Date: 20251231
  Transmission Date: 20260118
  Serious: Yes (Other)
  Sender: REVANCE THERAPEUTICS
  Company Number: US-REVANCE THERAPEUTICS INC.-US-REV-2025-000944

PATIENT

DRUGS (2)
  1. DAXIBOTULINUMTOXIN A-LANM [Suspect]
     Active Substance: DAXIBOTULINUMTOXIN A-LANM
     Indication: Skin wrinkling
     Dosage: 15 UNITS AT FOREHEAD LINES, 25 UNITS AT GLABELLA, 10 UNITS AT NASALIS, 30 UNITS AT CROW^S FEET, 10 U
     Route: 065
     Dates: start: 20251213
  2. DAXIBOTULINUMTOXIN A-LANM [Suspect]
     Active Substance: DAXIBOTULINUMTOXIN A-LANM
     Dosage: 15 UNITS AT FOREHEAD LINES, 25 UNITS AT GLABELLA, 10 UNITS AT NASALIS, 30 UNITS AT CROW^S FEET, 10 U
     Route: 065
     Dates: start: 20251213

REACTIONS (7)
  - Bell^s palsy [Unknown]
  - Drooling [Unknown]
  - Muscle tightness [Unknown]
  - Hypoaesthesia [Unknown]
  - Facial asymmetry [Unknown]
  - Underdose [Unknown]
  - Off label use [Unknown]

NARRATIVE: CASE EVENT DATE: 20251213
